FAERS Safety Report 24936425 (Version 1)
Quarter: 2025Q1

REPORT INFORMATION
  Report Type: Report from Study
  Country: IN (occurrence: IN)
  Receive Date: 20250206
  Receipt Date: 20250206
  Transmission Date: 20250408
  Serious: Yes (Death)
  Sender: ROCHE
  Company Number: IN-ROCHE-10000072025

PATIENT
  Age: 42 Year
  Sex: Female

DRUGS (2)
  1. PHESGO [Suspect]
     Active Substance: HYALURONIDASE-ZZXF\PERTUZUMAB\TRASTUZUMAB
     Indication: Breast cancer metastatic
     Dosage: LAST DOSE RECEIVED ON 02-JAN-2025.
     Route: 058
     Dates: start: 20240523
  2. PHESGO [Suspect]
     Active Substance: HYALURONIDASE-ZZXF\PERTUZUMAB\TRASTUZUMAB
     Route: 058

REACTIONS (7)
  - Off label use [Unknown]
  - Mucosal inflammation [Unknown]
  - Nasopharyngitis [Unknown]
  - Constipation [Unknown]
  - Diarrhoea [Fatal]
  - Liver injury [Fatal]
  - Infection [Fatal]
